FAERS Safety Report 7591810-0 (Version None)
Quarter: 2011Q3

REPORT INFORMATION
  Report Type: 
  Country: None (occurrence: None)
  Receive Date: 20110701
  Receipt Date: 20110701
  Transmission Date: 20111222
  Serious: Yes (Hospitalization)
  Sender: FDA-Public Use
  Company Number: None

PATIENT
  Age: 43 Year
  Sex: Female
  Weight: 75.7 kg

DRUGS (2)
  1. AZITHROMYCIN [Suspect]
     Indication: CELLULITIS
     Dosage: 500MG DAILY PO 1 DOSE
     Route: 048
  2. AZITHROMYCIN [Suspect]
     Indication: ANIMAL BITE
     Dosage: 500MG DAILY PO 1 DOSE
     Route: 048

REACTIONS (2)
  - URTICARIA [None]
  - PRURITUS GENERALISED [None]
